FAERS Safety Report 11288142 (Version 3)
Quarter: 2015Q3

REPORT INFORMATION
  Report Type: Spontaneous
  Country: US (occurrence: US)
  Receive Date: 20150721
  Receipt Date: 20150903
  Transmission Date: 20151125
  Serious: No
  Sender: FDA-Public Use
  Company Number: US-ASTRAZENECA-2015SE68334

PATIENT
  Sex: Male

DRUGS (2)
  1. SYMBICORT [Suspect]
     Active Substance: BUDESONIDE\FORMOTEROL FUMARATE DIHYDRATE
     Dosage: 160/4.5, 2 PUFFS/ BID
     Route: 055
  2. PROAIR HFA [Concomitant]
     Active Substance: ALBUTEROL SULFATE
     Route: 055

REACTIONS (7)
  - Dysphonia [Unknown]
  - Product taste abnormal [Unknown]
  - Drug ineffective [Unknown]
  - Intentional device misuse [Unknown]
  - Circumstance or information capable of leading to medication error [Unknown]
  - Wheezing [Unknown]
  - Nasopharyngitis [Unknown]
